FAERS Safety Report 14893036 (Version 3)
Quarter: 2018Q4

REPORT INFORMATION
  Report Type: Spontaneous
  Country: US (occurrence: US)
  Receive Date: 20180514
  Receipt Date: 20181031
  Transmission Date: 20190204
  Serious: Yes (Life-Threatening, Other)
  Sender: FDA-Public Use
  Company Number: GB-SA-2017SA154967

PATIENT
  Age: 27 Year
  Sex: Male

DRUGS (6)
  1. CARBOPLATIN. [Suspect]
     Active Substance: CARBOPLATIN
     Dosage: UNK UNK,QCY
     Route: 065
     Dates: start: 201509, end: 201511
  2. IFOSFAMIDE. [Concomitant]
     Active Substance: IFOSFAMIDE
     Indication: TESTICULAR GERM CELL TUMOUR
     Dosage: UNK UNK,QCY
     Route: 065
     Dates: start: 201501, end: 201503
  3. GEMCITABINE [Concomitant]
     Active Substance: GEMCITABINE\GEMCITABINE HYDROCHLORIDE
     Indication: TESTICULAR GERM CELL TUMOUR
     Dosage: UNK UNK,UNK
     Route: 065
     Dates: start: 201601
  4. OXALIPLATIN. [Suspect]
     Active Substance: OXALIPLATIN
     Indication: TESTICULAR GERM CELL TUMOUR
     Dosage: UNK UNK,UNK
     Route: 065
     Dates: start: 201601
  5. CISPLATIN. [Suspect]
     Active Substance: CISPLATIN
     Indication: TESTICULAR GERM CELL TUMOUR
     Dosage: UNK UNK,QCY
     Route: 065
     Dates: start: 201501, end: 201503
  6. ETOPOSIDE. [Concomitant]
     Active Substance: ETOPOSIDE
     Indication: TESTICULAR GERM CELL TUMOUR
     Dosage: UNK UNK,QCY
     Route: 065
     Dates: start: 201509, end: 201511

REACTIONS (3)
  - Disease progression [Unknown]
  - Testicular germ cell cancer metastatic [Unknown]
  - Drug ineffective [Unknown]
